APPROVED DRUG PRODUCT: NYSTOP
Active Ingredient: NYSTATIN
Strength: 100,000 UNITS/GM
Dosage Form/Route: POWDER;TOPICAL
Application: A064118 | Product #001 | TE Code: AT
Applicant: PADAGIS US LLC
Approved: Aug 16, 1996 | RLD: No | RS: No | Type: RX